FAERS Safety Report 9246096 (Version 3)
Quarter: 2013Q2

REPORT INFORMATION
  Report Type: Spontaneous
  Country: US (occurrence: US)
  Receive Date: 20130422
  Receipt Date: 20130613
  Transmission Date: 20140414
  Serious: No
  Sender: FDA-Public Use
  Company Number: US-VERTEX PHARMACEUTICALS INC.-2013-005174

PATIENT
  Age: 51 Year
  Sex: Male
  Weight: 91 kg

DRUGS (6)
  1. INCIVEK [Suspect]
     Indication: HEPATITIS C
     Dosage: 750 MG, TID
     Route: 048
     Dates: start: 20130412
  2. RIBAVIRIN [Suspect]
     Indication: HEPATITIS C
     Dosage: 600 MG, BID
     Route: 048
     Dates: start: 20130412
  3. PEGASYS [Suspect]
     Indication: HEPATITIS C
     Dosage: 180 ?G, QW
     Route: 058
     Dates: start: 20130412
  4. ESCITALOPRAM [Concomitant]
     Dosage: 10 MG, QD
     Route: 048
     Dates: start: 20130411
  5. ATIVAN [Concomitant]
     Dosage: 2 MG, AT BED TIME
     Route: 048
     Dates: start: 20130411
  6. LISINOPRIL [Concomitant]
     Dosage: 10 MG, QD
     Route: 048
     Dates: start: 20130411

REACTIONS (6)
  - Ocular hyperaemia [Not Recovered/Not Resolved]
  - Erythema [Recovered/Resolved]
  - Blister [Recovered/Resolved]
  - Pruritus [Not Recovered/Not Resolved]
  - Dysgeusia [Not Recovered/Not Resolved]
  - Nausea [Not Recovered/Not Resolved]
